FAERS Safety Report 5821233-3 (Version None)
Quarter: 2008Q3

REPORT INFORMATION
  Report Type: 
  Country: None (occurrence: None)
  Receive Date: 20080723
  Receipt Date: 20080717
  Transmission Date: 20090109
  Serious: Yes (Hospitalization)
  Sender: FDA-Public Use
  Company Number: APP200800693

PATIENT
  Age: 64 Year
  Sex: Male

DRUGS (3)
  1. HEPARIN SODIUM INJECTION [Suspect]
     Indication: DEEP VEIN THROMBOSIS
     Dosage: VARYING DOSES, INTRAVENOUS BOLUS
     Route: 040
     Dates: start: 20080702, end: 20080707
  2. HEPARIN SODIUM INJECTION [Suspect]
     Indication: DEEP VEIN THROMBOSIS
     Dosage: VARYING DOSES, INTRAVENOUS BOLUS
     Route: 040
     Dates: start: 20080701, end: 20080712
  3. HEPARIN [Suspect]
     Indication: DEEP VEIN THROMBOSIS
     Dosage: 100 U/ML IN A 250 BAG, INTRAVENOUS
     Route: 041
     Dates: start: 20080701, end: 20080712

REACTIONS (1)
  - HEPARIN-INDUCED THROMBOCYTOPENIA [None]
